FAERS Safety Report 8157882-X (Version None)
Quarter: 2012Q1

REPORT INFORMATION
  Report Type: 
  Country: None (occurrence: None)
  Receive Date: 20120222
  Receipt Date: 20120216
  Transmission Date: 20120608
  Serious: Yes (Death, Other)
  Sender: FDA-Public Use
  Company Number: US-VERTEX PHARMACEUTICALS INC.-AE-2011-005474

PATIENT
  Sex: Male

DRUGS (16)
  1. INCIVEK [Suspect]
     Indication: HEPATITIS C
     Dates: start: 20110923, end: 20111210
  2. RIBAVIRIN [Concomitant]
     Indication: HEPATITIS C
     Dates: start: 20110923, end: 20111210
  3. LISINOPRIL [Concomitant]
     Route: 048
  4. RIBAVIRIN [Concomitant]
  5. AMITRIPTYLINE HCL [Concomitant]
     Route: 048
  6. SYNTHROID [Concomitant]
     Route: 048
  7. MULTI-VITAMINS [Concomitant]
     Route: 048
  8. LIVER FORCE [Concomitant]
  9. FOLIC ACID [Concomitant]
     Indication: ANAEMIA
  10. ASPIRIN [Concomitant]
     Route: 048
  11. NORCO [Concomitant]
     Indication: ARTHRALGIA
  12. FISH OIL [Concomitant]
     Route: 048
  13. IBUPROFEN [Concomitant]
     Route: 048
  14. PEGASYS [Concomitant]
     Indication: HEPATITIS C
     Dates: start: 20110923, end: 20111210
  15. CLONAZEPAM [Concomitant]
     Route: 048
  16. GLUCOSAMINE CHONDROITIN [Concomitant]
     Route: 048

REACTIONS (2)
  - ARTERIOSCLEROSIS [None]
  - ANAEMIA [None]
